FAERS Safety Report 5618447-4 (Version None)
Quarter: 2008Q1

REPORT INFORMATION
  Report Type: 
  Country: None (occurrence: None)
  Receive Date: 20080204
  Receipt Date: 20080122
  Transmission Date: 20080703
  Serious: Yes (Other)
  Sender: FDA-Public Use
  Company Number: 2007SP022765

PATIENT
  Age: 28 Year
  Sex: Male
  Weight: 88.4514 kg

DRUGS (2)
  1. DR SCHOLL'S ULTRA THIN CORN REMOVERS (40 PCT) [Suspect]
     Indication: SKIN LESION EXCISION
     Dosage: UNK; TOP
     Route: 061
  2. VANCOMYCIN [Suspect]
     Indication: CELLULITIS

REACTIONS (9)
  - CELLULITIS [None]
  - HAEMATOCRIT DECREASED [None]
  - HAEMOGLOBIN DECREASED [None]
  - OSTEOMYELITIS [None]
  - POST PROCEDURAL COMPLICATION [None]
  - RED MAN SYNDROME [None]
  - TINEA PEDIS [None]
  - TOE AMPUTATION [None]
  - WOUND INFECTION STAPHYLOCOCCAL [None]
